FAERS Safety Report 9752623 (Version 2)
Quarter: 2014Q1

REPORT INFORMATION
  Report Type: Spontaneous
  Country: US (occurrence: US)
  Receive Date: 20131213
  Receipt Date: 20140108
  Transmission Date: 20141002
  Serious: No
  Sender: FDA-Public Use
  Company Number: US-009507513-1311USA000269

PATIENT
  Sex: Female

DRUGS (2)
  1. FOSAMAX PLUS D [Suspect]
     Indication: OSTEOPOROSIS
     Dosage: 70 MG/2800 IU
     Route: 048
     Dates: start: 201106, end: 201310
  2. FOSAMAX PLUS D [Suspect]
     Dosage: 70 MG/2800 IU
     Route: 048
     Dates: start: 20131027

REACTIONS (4)
  - Visual impairment [Not Recovered/Not Resolved]
  - Tooth infection [Not Recovered/Not Resolved]
  - Gingival swelling [Not Recovered/Not Resolved]
  - Arthralgia [Not Recovered/Not Resolved]
